FAERS Safety Report 8214027-5 (Version None)
Quarter: 2012Q1

REPORT INFORMATION
  Report Type: 
  Country: None (occurrence: None)
  Receive Date: 20120316
  Receipt Date: 20120312
  Transmission Date: 20120608
  Serious: No
  Sender: FDA-Public Use
  Company Number: US-PFIZER INC-2012065356

PATIENT
  Sex: Female
  Weight: 108.84 kg

DRUGS (2)
  1. SIMVASTATIN [Concomitant]
     Dosage: UNK
  2. CELEBREX [Suspect]
     Indication: ARTHRITIS
     Dosage: 200 MG, 1X/DAY
     Route: 048
     Dates: start: 20060101

REACTIONS (1)
  - PRURITUS GENERALISED [None]
